FAERS Safety Report 14578813 (Version 7)
Quarter: 2022Q2

REPORT INFORMATION
  Report Type: Report from Study
  Country: CA (occurrence: CA)
  Receive Date: 20180227
  Receipt Date: 20220607
  Transmission Date: 20220721
  Serious: Yes (Other)
  Sender: FDA-Public Use
  Company Number: PHHY2018CA032023

PATIENT
  Age: 40 Year
  Sex: Male

DRUGS (3)
  1. COSENTYX [Suspect]
     Active Substance: SECUKINUMAB
     Indication: Psoriasis
     Dosage: 300 MG, UNKNOWN
     Route: 058
     Dates: start: 20180110, end: 20180131
  2. COSENTYX [Suspect]
     Active Substance: SECUKINUMAB
     Dosage: 300 MG, UNKNOWN
     Route: 058
     Dates: start: 20180207
  3. ENSTILAR [Concomitant]
     Active Substance: BETAMETHASONE DIPROPIONATE\CALCIPOTRIENE HYDRATE
     Indication: Allergy to animal
     Dosage: UNK
     Route: 065
     Dates: start: 20180106

REACTIONS (11)
  - Immunosuppression [Unknown]
  - Infection susceptibility increased [Unknown]
  - Diabetes mellitus [Not Recovered/Not Resolved]
  - Actinic keratosis [Recovered/Resolved]
  - Heart rate increased [Recovered/Resolved]
  - Hypertension [Recovered/Resolved]
  - Nasopharyngitis [Recovered/Resolved]
  - Hypertension [Not Recovered/Not Resolved]
  - Actinic keratosis [Recovered/Resolved]
  - Hyperlipidaemia [Not Recovered/Not Resolved]
  - Tendonitis [Not Recovered/Not Resolved]

NARRATIVE: CASE EVENT DATE: 20190501
